FAERS Safety Report 6619281-9 (Version None)
Quarter: 2010Q1

REPORT INFORMATION
  Report Type: 
  Country: None (occurrence: None)
  Receive Date: 20100303
  Receipt Date: 20100218
  Transmission Date: 20100710
  Serious: Yes (Hospitalization)
  Sender: FDA-Public Use
  Company Number: 2010-0283

PATIENT
  Age: 10 Year
  Sex: Male
  Weight: 18 kg

DRUGS (7)
  1. INCRELEX [Suspect]
     Indication: GROWTH HORMONE DEFICIENCY
     Dosage: (0.12 MG/KG,), SUBCUTANEOUS
     Route: 058
     Dates: start: 20081201
  2. CREON [Concomitant]
  3. UVESTEROL (UVESTEROL) [Concomitant]
  4. URSODIOL [Concomitant]
  5. VENTOLIN [Concomitant]
  6. BECONASE [Concomitant]
  7. OMEPRAZOLE [Concomitant]

REACTIONS (1)
  - HYDROCELE FEMALE [None]
